FAERS Safety Report 5031982-5 (Version None)
Quarter: 2006Q2

REPORT INFORMATION
  Report Type: 
  Country: None (occurrence: None)
  Receive Date: 20060621
  Receipt Date: 20060612
  Transmission Date: 20061013
  Serious: Yes (Other)
  Sender: FDA-Public Use
  Company Number: JP-ABBOTT-06P-087-0335723-00

PATIENT
  Age: 4 Year
  Sex: Female

DRUGS (1)
  1. CEFZON FINE GRANULE [Suspect]
     Indication: DRUG USE FOR UNKNOWN INDICATION
     Route: 048
     Dates: start: 20040601, end: 20040601

REACTIONS (2)
  - HEPATOCELLULAR DAMAGE [None]
  - TOXIC EPIDERMAL NECROLYSIS [None]
